FAERS Safety Report 22294311 (Version 1)
Quarter: 2023Q2

REPORT INFORMATION
  Report Type: Spontaneous
  Country: US (occurrence: US)
  Receive Date: 20230508
  Receipt Date: 20230508
  Transmission Date: 20230722
  Serious: No
  Sender: FDA-Public Use
  Company Number: US-ABBVIE-4752103

PATIENT
  Sex: Female

DRUGS (1)
  1. CREON [Suspect]
     Active Substance: PANCRELIPASE AMYLASE\PANCRELIPASE LIPASE\PANCRELIPASE PROTEASE
     Indication: Product used for unknown indication
     Dosage: FORM STRENGTH: 36000 IU (INTERNATIONAL UNIT)?FREQUENCY TEXT: UNKNOWN?START DATE TEXT: FEBRUARY OR...
     Route: 048

REACTIONS (3)
  - Dizziness [Unknown]
  - Diarrhoea [Unknown]
  - Headache [Unknown]
